FAERS Safety Report 16116609 (Version 1)
Quarter: 2019Q1

REPORT INFORMATION
  Report Type: Report from Study
  Country: US (occurrence: US)
  Receive Date: 20190326
  Receipt Date: 20190326
  Transmission Date: 20190418
  Serious: No
  Sender: FDA-Public Use
  Company Number: US-ROCHE-2286778

PATIENT
  Sex: Male
  Weight: 107.14 kg

DRUGS (13)
  1. OCREVUS [Suspect]
     Active Substance: OCRELIZUMAB
     Dosage: 04/DEC/2017, RECEEIVED SAME SUBSEQUENT DOSE
     Route: 042
     Dates: start: 20171120
  2. TIZANIDINE. [Concomitant]
     Active Substance: TIZANIDINE
     Dosage: TWICE A DAY
     Route: 065
  3. BETHANECHOL [Concomitant]
     Active Substance: BETHANECHOL
     Dosage: TWICE A DAY ;ONGOING: YES
     Route: 065
  4. VITAMIN D3 [Concomitant]
     Active Substance: CHOLECALCIFEROL
     Dosage: ONGOING : YES
     Route: 065
  5. MODAFINIL. [Concomitant]
     Active Substance: MODAFINIL
     Indication: FATIGUE
     Dosage: TWICE A DAY ;ONGOING: YES
     Route: 065
  6. MELOXICAM. [Concomitant]
     Active Substance: MELOXICAM
     Indication: INFLAMMATION
     Dosage: AT BEDTIME ;ONGOING: YES
     Route: 065
  7. DIPHENHYDRAMINE. [Concomitant]
     Active Substance: DIPHENHYDRAMINE
     Route: 042
  8. OCREVUS [Suspect]
     Active Substance: OCRELIZUMAB
     Route: 042
     Dates: start: 20180614
  9. XANAX [Concomitant]
     Active Substance: ALPRAZOLAM
     Dosage: 0.5MG ONE AS NEEDED ;ONGOING: YES
     Route: 065
  10. BABY ASPIRIN [Concomitant]
     Active Substance: ASPIRIN
     Dosage: ONCE A DAY ;ONGOING: YES
     Route: 065
  11. AMANTADINE. [Concomitant]
     Active Substance: AMANTADINE HYDROCHLORIDE
     Route: 065
  12. OCREVUS [Suspect]
     Active Substance: OCRELIZUMAB
     Indication: RELAPSING MULTIPLE SCLEROSIS
     Dosage: ONGOING: UNKNOWN
     Route: 042
     Dates: start: 2018
  13. TRAMADOL. [Concomitant]
     Active Substance: TRAMADOL
     Indication: PAIN
     Dosage: TWICE A DAY ;ONGOING: YES
     Route: 065

REACTIONS (1)
  - Nasopharyngitis [Unknown]
